FAERS Safety Report 7426827 (Version 30)
Quarter: 2016Q1

REPORT INFORMATION
  Report Type: Spontaneous
  Country: CA (occurrence: CA)
  Receive Date: 20100621
  Receipt Date: 20160226
  Transmission Date: 20160526
  Serious: Yes (Hospitalization, Other)
  Sender: FDA-Public Use
  Company Number: CA-ROCHE-GNE303057

PATIENT
  Age: 56 Year
  Sex: Female
  Weight: 54 kg

DRUGS (21)
  1. XOLAIR [Suspect]
     Active Substance: OMALIZUMAB
     Route: 058
     Dates: start: 20080612
  2. PREDNISOLONE. [Concomitant]
     Active Substance: PREDNISOLONE
  3. ADVAIR HFA [Concomitant]
     Active Substance: FLUTICASONE PROPIONATE\SALMETEROL XINAFOATE
  4. XOLAIR [Suspect]
     Active Substance: OMALIZUMAB
     Route: 058
  5. XOLAIR [Suspect]
     Active Substance: OMALIZUMAB
     Route: 058
  6. XOLAIR [Suspect]
     Active Substance: OMALIZUMAB
     Route: 058
     Dates: start: 20150618
  7. KETAMINE [Concomitant]
     Active Substance: KETAMINE
     Route: 065
     Dates: start: 20080402
  8. SALBUTAMOL [Concomitant]
     Active Substance: ALBUTEROL
  9. XOLAIR [Suspect]
     Active Substance: OMALIZUMAB
     Route: 058
     Dates: start: 20140206
  10. XOLAIR [Suspect]
     Active Substance: OMALIZUMAB
     Route: 058
     Dates: start: 20150806
  11. FLONASE [Concomitant]
     Active Substance: FLUTICASONE PROPIONATE
  12. SODIUM AMYTAL [Concomitant]
  13. XOLAIR [Suspect]
     Active Substance: OMALIZUMAB
     Route: 058
     Dates: start: 20140109
  14. ALVESCO [Concomitant]
     Active Substance: CICLESONIDE
  15. XOLAIR [Suspect]
     Active Substance: OMALIZUMAB
     Indication: ASTHMA
     Dosage: 150 MG, 1/MONTH
     Route: 058
     Dates: start: 20060612
  16. VENTOLIN [Concomitant]
     Active Substance: ALBUTEROL SULFATE
  17. XOLAIR [Suspect]
     Active Substance: OMALIZUMAB
     Route: 058
     Dates: start: 20100222
  18. MANNITOL. [Concomitant]
     Active Substance: MANNITOL
  19. ATROPINE. [Concomitant]
     Active Substance: ATROPINE
  20. PULMICORT TURBUHALER [Concomitant]
     Active Substance: BUDESONIDE
  21. SINGULAIR [Concomitant]
     Active Substance: MONTELUKAST SODIUM

REACTIONS (36)
  - Weight increased [Unknown]
  - Pharyngitis [Unknown]
  - Emotional distress [Unknown]
  - Pain [Unknown]
  - Diarrhoea [Not Recovered/Not Resolved]
  - Eczema [Recovering/Resolving]
  - Sinusitis [Not Recovered/Not Resolved]
  - Sleep disorder [Unknown]
  - Stress [Unknown]
  - Lung disorder [Unknown]
  - Insomnia [Unknown]
  - Paraesthesia [Unknown]
  - General physical health deterioration [Unknown]
  - Sinus disorder [Unknown]
  - Vomiting [Not Recovered/Not Resolved]
  - Constipation [Unknown]
  - Dyspnoea [Unknown]
  - Toothache [Unknown]
  - Gastric disorder [Unknown]
  - Complex regional pain syndrome [Not Recovered/Not Resolved]
  - Mobility decreased [Unknown]
  - Malaise [Not Recovered/Not Resolved]
  - Psoriasis [Unknown]
  - Pain in extremity [Unknown]
  - Bronchitis [Unknown]
  - Influenza [Unknown]
  - Abdominal distension [Unknown]
  - Hypoventilation [Unknown]
  - Headache [Unknown]
  - Allergy to arthropod sting [Unknown]
  - Blood pressure increased [Unknown]
  - Asthma [Unknown]
  - Nasal discharge discolouration [Unknown]
  - Hypersensitivity [Unknown]
  - Alopecia [Unknown]
  - Hypokinesia [Unknown]

NARRATIVE: CASE EVENT DATE: 201206
